FAERS Safety Report 8328098-9 (Version None)
Quarter: 2012Q2

REPORT INFORMATION
  Report Type: 
  Country: None (occurrence: None)
  Receive Date: 20120502
  Receipt Date: 20120425
  Transmission Date: 20120825
  Serious: Yes (Hospitalization)
  Sender: FDA-Public Use
  Company Number: PHHO2012CA003091

PATIENT
  Sex: Female
  Weight: 53.5 kg

DRUGS (5)
  1. SIMULECT [Suspect]
     Dosage: 20 MG, 1/2
     Route: 042
     Dates: start: 20120211, end: 20120211
  2. MYCOPHENOLATE MOFETIL [Suspect]
     Indication: RENAL TRANSPLANT
     Dosage: 1 G, BID
     Route: 048
     Dates: start: 20120211, end: 20120211
  3. MYCOPHENOLATE MOFETIL [Suspect]
     Dosage: 1.5 G, BID
     Route: 048
     Dates: start: 20120212
  4. PROGRAF [Suspect]
     Indication: IMMUNOSUPPRESSION
     Dosage: 3, BID
     Route: 048
     Dates: start: 20120224, end: 20120228
  5. SOLU-MEDROL [Suspect]
     Indication: IMMUNOSUPPRESSION
     Dosage: 250, 1/2
     Route: 042
     Dates: start: 20120211, end: 20120211

REACTIONS (5)
  - OESOPHAGITIS [None]
  - SEPTIC SHOCK [None]
  - NEUTROPENIC COLITIS [None]
  - RENAL HAEMATOMA [None]
  - PANCYTOPENIA [None]
